FAERS Safety Report 5487983-6 (Version None)
Quarter: 2007Q4

REPORT INFORMATION
  Report Type: 
  Country: None (occurrence: None)
  Receive Date: 20071017
  Receipt Date: 20071010
  Transmission Date: 20080405
  Serious: Yes (Death, Other)
  Sender: FDA-Public Use
  Company Number: HQWYE040227FEB06

PATIENT
  Sex: Female

DRUGS (4)
  1. PREMPRO [Suspect]
  2. CYCRIN [Suspect]
  3. PROVERA [Suspect]
  4. CONJUGATED ESTROGENS [Suspect]

REACTIONS (1)
  - BREAST CANCER METASTATIC [None]
